FAERS Safety Report 18125692 (Version 2)
Quarter: 2020Q3

REPORT INFORMATION
  Report Type: Spontaneous
  Country: US (occurrence: US)
  Receive Date: 20200807
  Receipt Date: 20200930
  Transmission Date: 20201103
  Serious: Yes (Other)
  Sender: FDA-Public Use
  Company Number: US-PFIZER INC-2020301265

PATIENT
  Age: 83 Year
  Sex: Male
  Weight: 65.77 kg

DRUGS (2)
  1. VYNDAMAX [Suspect]
     Active Substance: TAFAMIDIS
     Indication: CARDIAC DISORDER
     Dosage: 61 MG
  2. VYNDAMAX [Suspect]
     Active Substance: TAFAMIDIS
     Dosage: 1 DF, 1X/DAY (UNSURE OF DOSE, 1 CAPSULE BY MOUTH ONCE DAILY)
     Route: 048
     Dates: start: 2020

REACTIONS (1)
  - Dementia [Unknown]
